FAERS Safety Report 13913163 (Version 1)
Quarter: 2017Q3

REPORT INFORMATION
  Report Type: Spontaneous
  Country: US (occurrence: US)
  Receive Date: 20170828
  Receipt Date: 20170828
  Transmission Date: 20171127
  Serious: No
  Sender: FDA-Public Use
  Company Number: US-ROCHE-1125560

PATIENT
  Sex: Male
  Weight: 80.81 kg

DRUGS (15)
  1. CALCIUM [Concomitant]
     Active Substance: CALCIUM
     Route: 065
  2. MULTIPLE VITAMIN [Concomitant]
     Active Substance: VITAMINS
     Route: 065
     Dates: start: 20010507
  3. MAXZIDE [Concomitant]
     Active Substance: HYDROCHLOROTHIAZIDE\TRIAMTERENE
     Dosage: 37.5/25 ONE HALF
     Route: 065
     Dates: start: 20010716
  4. CALCIUM [Concomitant]
     Active Substance: CALCIUM
     Route: 048
     Dates: start: 20010507
  5. PEPCID AC [Concomitant]
     Active Substance: FAMOTIDINE
     Route: 065
     Dates: start: 20010716
  6. MULTIPLE VITAMIN [Concomitant]
     Active Substance: VITAMINS
     Route: 065
     Dates: start: 20010716
  7. MAXZIDE [Concomitant]
     Active Substance: HYDROCHLOROTHIAZIDE\TRIAMTERENE
     Dosage: 37.5/25 ONE HALF
     Route: 048
     Dates: start: 20010507
  8. IBUPROFEN. [Concomitant]
     Active Substance: IBUPROFEN
     Route: 065
     Dates: start: 20010716
  9. NUTROPIN AQ [Suspect]
     Active Substance: SOMATROPIN
     Route: 058
     Dates: start: 20010507
  10. IBUPROFEN. [Concomitant]
     Active Substance: IBUPROFEN
     Route: 065
     Dates: start: 20010507
  11. NUTROPIN AQ [Suspect]
     Active Substance: SOMATROPIN
     Route: 058
     Dates: start: 20010716
  12. POTASSIUM [Concomitant]
     Active Substance: POTASSIUM
     Route: 065
     Dates: start: 20010507
  13. NUTROPIN AQ [Suspect]
     Active Substance: SOMATROPIN
     Indication: GROWTH HORMONE DEFICIENCY
     Route: 065
  14. POTASSIUM [Concomitant]
     Active Substance: POTASSIUM
     Route: 065
     Dates: start: 20010716
  15. PEPCID AC [Concomitant]
     Active Substance: FAMOTIDINE
     Route: 065
     Dates: start: 20010507

REACTIONS (11)
  - Very low density lipoprotein increased [Unknown]
  - Dry skin [Unknown]
  - Blood triglycerides increased [Unknown]
  - Musculoskeletal stiffness [Recovering/Resolving]
  - Myalgia [Unknown]
  - Swelling [Unknown]
  - Malaise [Unknown]
  - Insulin-like growth factor increased [Unknown]
  - Hypothyroidism [Unknown]
  - Asthenia [Recovered/Resolved]
  - Neck pain [Recovering/Resolving]
